FAERS Safety Report 22294805 (Version 5)
Quarter: 2024Q1

REPORT INFORMATION
  Report Type: Report from Study
  Country: CA (occurrence: CA)
  Receive Date: 20230508
  Receipt Date: 20240101
  Transmission Date: 20240409
  Serious: Yes (Other)
  Sender: FDA-Public Use
  Company Number: CA-TAKEDA-2023TUS044462

PATIENT
  Age: 29 Year
  Sex: Male

DRUGS (10)
  1. VEDOLIZUMAB [Suspect]
     Active Substance: VEDOLIZUMAB
     Indication: Colitis ulcerative
     Dosage: 300 MILLIGRAM
     Route: 042
     Dates: start: 20220107
  2. VEDOLIZUMAB [Suspect]
     Active Substance: VEDOLIZUMAB
     Dosage: 300 MILLIGRAM, Q4WEEKS
     Route: 042
     Dates: start: 20230512
  3. VEDOLIZUMAB [Suspect]
     Active Substance: VEDOLIZUMAB
     Dosage: 300 MILLIGRAM, Q4WEEKS
     Route: 042
  4. VEDOLIZUMAB [Suspect]
     Active Substance: VEDOLIZUMAB
     Dosage: 300 MILLIGRAM, Q4WEEKS
     Route: 042
  5. VEDOLIZUMAB [Suspect]
     Active Substance: VEDOLIZUMAB
     Dosage: 300 MILLIGRAM, Q4WEEKS
     Route: 042
  6. PREDNISONE [Concomitant]
     Active Substance: PREDNISONE
     Dosage: UNK
  7. SPIRONOLACTONE [Concomitant]
     Active Substance: SPIRONOLACTONE
     Dosage: 200 MILLIGRAM
     Route: 048
  8. ESTRADIOL [Concomitant]
     Active Substance: ESTRADIOL
     Dosage: 4 MILLIGRAM
     Route: 048
  9. DAYVIGO [Concomitant]
     Active Substance: LEMBOREXANT
     Indication: Sleep disorder
     Dosage: 5 MILLIGRAM
     Route: 048
  10. PROGESTERONE [Concomitant]
     Active Substance: PROGESTERONE
     Dosage: 100 MILLIGRAM, QD
     Route: 048

REACTIONS (3)
  - Rectal haemorrhage [Unknown]
  - Colitis ulcerative [Recovering/Resolving]
  - Off label use [Unknown]

NARRATIVE: CASE EVENT DATE: 20230512
